FAERS Safety Report 24983090 (Version 2)
Quarter: 2025Q3

REPORT INFORMATION
  Report Type: Report from Study
  Country: US (occurrence: US)
  Receive Date: 20250218
  Receipt Date: 20250803
  Transmission Date: 20251021
  Serious: Yes (Hospitalization, Other)
  Sender: ALEXION PHARMACEUTICALS
  Company Number: US-AstraZeneca-CH-00806049A

PATIENT
  Sex: Male

DRUGS (1)
  1. BENRALIZUMAB [Suspect]
     Active Substance: BENRALIZUMAB
     Route: 065

REACTIONS (8)
  - Influenza [Unknown]
  - Asthma [Unknown]
  - Cerebrovascular accident [Unknown]
  - Prostate cancer [Unknown]
  - Dyspnoea [Unknown]
  - Fatigue [Unknown]
  - Cough [Recovering/Resolving]
  - Dysuria [Unknown]
